FAERS Safety Report 5672668-3 (Version None)
Quarter: 2008Q1

REPORT INFORMATION
  Report Type: 
  Country: None (occurrence: None)
  Receive Date: 20080319
  Receipt Date: 20070917
  Transmission Date: 20080703
  Serious: No
  Sender: FDA-Public Use
  Company Number: US-KINGPHARMUSA00001-K200600836

PATIENT

DRUGS (4)
  1. ALTACE [Suspect]
     Indication: HYPERTENSION
     Dosage: 5 MG, UNK
  2. ALTACE [Suspect]
     Dosage: 5 MG, BID
     Route: 048
     Dates: start: 20070301, end: 20070901
  3. TOPROL-XL [Suspect]
     Dosage: 50 MG, UNK
  4. NORVASC [Suspect]
     Dosage: 5 MG, UNK

REACTIONS (5)
  - DIZZINESS [None]
  - GAIT DISTURBANCE [None]
  - HYPERTENSION [None]
  - MALAISE [None]
  - NAUSEA [None]
